FAERS Safety Report 5541645-5 (Version None)
Quarter: 2007Q4

REPORT INFORMATION
  Report Type: 
  Country: None (occurrence: None)
  Receive Date: 20071210
  Receipt Date: 20071126
  Transmission Date: 20080405
  Serious: Yes (Other)
  Sender: FDA-Public Use
  Company Number: US-AMGEN-US244837

PATIENT
  Sex: Male
  Weight: 72.6 kg

DRUGS (7)
  1. KINERET [Suspect]
     Indication: RHEUMATOID ARTHRITIS
     Route: 058
     Dates: start: 20070628
  2. AURANOFIN [Concomitant]
     Route: 065
     Dates: start: 20070922
  3. OXYCONTIN [Concomitant]
     Route: 065
  4. DIGITEK [Concomitant]
     Route: 065
  5. COUMADIN [Concomitant]
     Route: 065
  6. COREG [Concomitant]
     Route: 065
  7. VICODIN [Concomitant]
     Route: 065

REACTIONS (2)
  - DRUG INEFFECTIVE [None]
  - HAEMOLYTIC ANAEMIA [None]
